FAERS Safety Report 19697312 (Version 2)
Quarter: 2021Q3

REPORT INFORMATION
  Report Type: Report from Study
  Country: PA (occurrence: PA)
  Receive Date: 20210813
  Receipt Date: 20210813
  Transmission Date: 20211014
  Serious: Yes (Other)
  Sender: FDA-Public Use
  Company Number: NVSC2016PA003046

PATIENT
  Age: 58 Year
  Sex: Male
  Weight: 69 kg

DRUGS (13)
  1. AMLODIPINE [Suspect]
     Active Substance: AMLODIPINE BESYLATE
     Dosage: 5 MG, QD
     Route: 065
  2. OXYCODONE HYDROCHLORIDE. [Suspect]
     Active Substance: OXYCODONE HYDROCHLORIDE
     Indication: PAIN
     Dosage: UNK
     Route: 065
  3. GILENYA [Suspect]
     Active Substance: FINGOLIMOD HYDROCHLORIDE
     Indication: MULTIPLE SCLEROSIS
     Dosage: 0.5 MG, QD
     Route: 048
     Dates: start: 20160506
  4. CARBAMAZEPINE. [Suspect]
     Active Substance: CARBAMAZEPINE
     Indication: PRODUCT USED FOR UNKNOWN INDICATION
     Dosage: 200 MG, Q8H
     Route: 065
  5. AMLODIPINE [Suspect]
     Active Substance: AMLODIPINE BESYLATE
     Indication: HYPERTENSION
     Dosage: 1 DF, BID (ONE EVERY 12 HOURS)
     Route: 065
  6. GILENYA [Suspect]
     Active Substance: FINGOLIMOD HYDROCHLORIDE
     Dosage: 0.5 MG, QOD
     Route: 065
  7. SIMVASTATIN. [Concomitant]
     Active Substance: SIMVASTATIN
     Indication: PRODUCT USED FOR UNKNOWN INDICATION
     Dosage: 10 MG, BID
     Route: 065
  8. FENOFIBRATE. [Concomitant]
     Active Substance: FENOFIBRATE
     Indication: PRODUCT USED FOR UNKNOWN INDICATION
     Dosage: 250 MG, QN
     Route: 065
  9. GILENYA [Suspect]
     Active Substance: FINGOLIMOD HYDROCHLORIDE
     Dosage: 0.5 MG, QD
     Route: 065
     Dates: start: 20171025
  10. GILENYA [Suspect]
     Active Substance: FINGOLIMOD HYDROCHLORIDE
     Dosage: 0.5 MG, QD
     Route: 065
     Dates: start: 20170228
  11. GILENYA [Suspect]
     Active Substance: FINGOLIMOD HYDROCHLORIDE
     Dosage: 0.5 MG, QD
     Route: 065
     Dates: start: 20180319
  12. GILENYA [Suspect]
     Active Substance: FINGOLIMOD HYDROCHLORIDE
     Dosage: 0.5 MG (IN THE MORNING WITH BREAKFAST)
     Route: 065
  13. ESCITALOPRAM [Suspect]
     Active Substance: ESCITALOPRAM OXALATE
     Indication: SLEEP DISORDER
     Dosage: 10 MG, QD
     Route: 065

REACTIONS (33)
  - Prostatic specific antigen increased [Not Recovered/Not Resolved]
  - Bladder discomfort [Recovering/Resolving]
  - Hypoacusis [Unknown]
  - Rheumatoid factor [Not Recovered/Not Resolved]
  - Anaphylactic reaction [Unknown]
  - Fear [Unknown]
  - Visual impairment [Unknown]
  - Memory impairment [Unknown]
  - Back pain [Unknown]
  - Conjunctivitis [Unknown]
  - Sleep disorder [Unknown]
  - Pain [Unknown]
  - Fatigue [Unknown]
  - Tonsillitis [Unknown]
  - Somnolence [Unknown]
  - Weight decreased [Unknown]
  - Infection [Unknown]
  - Anxiety [Unknown]
  - Bradycardia [Not Recovered/Not Resolved]
  - Ill-defined disorder [Unknown]
  - Dysuria [Recovering/Resolving]
  - Muscle disorder [Unknown]
  - Feeling abnormal [Unknown]
  - Blood urine present [Unknown]
  - Choking [Unknown]
  - Lethargy [Unknown]
  - Bacterial test positive [Unknown]
  - Urine abnormality [Unknown]
  - Asthenia [Unknown]
  - Diverticulitis [Recovering/Resolving]
  - Urological examination abnormal [Unknown]
  - Heat stroke [Unknown]
  - Malaise [Unknown]

NARRATIVE: CASE EVENT DATE: 20170218
